FAERS Safety Report 10945799 (Version 2)
Quarter: 2015Q2

REPORT INFORMATION
  Report Type: Spontaneous
  Country: BR (occurrence: BR)
  Receive Date: 20150323
  Receipt Date: 20150504
  Transmission Date: 20150821
  Serious: Yes (Death)
  Sender: FDA-Public Use
  Company Number: BR-PFIZER INC-2015065975

PATIENT
  Sex: Male

DRUGS (1)
  1. SUTENT [Suspect]
     Active Substance: SUNITINIB MALATE
     Indication: RENAL CANCER METASTATIC
     Dosage: 4 TO 8 DF (NOT SURE ABOUT THE STRENGHT OF 25MG), DAILY

REACTIONS (7)
  - Yellow skin [Unknown]
  - Disease progression [Unknown]
  - Feeding disorder [Unknown]
  - Hypertension [Unknown]
  - Renal cancer metastatic [Unknown]
  - Pleural effusion [Fatal]
  - Lymphadenopathy [Unknown]

NARRATIVE: CASE EVENT DATE: 20150211
